FAERS Safety Report 12742871 (Version 2)
Quarter: 2017Q2

REPORT INFORMATION
  Report Type: Spontaneous
  Country: IT (occurrence: IT)
  Receive Date: 20160914
  Receipt Date: 20170601
  Transmission Date: 20170830
  Serious: Yes (Other)
  Sender: FDA-Public Use
  Company Number: IT-TEVA-691258ACC

PATIENT
  Age: 5 Year
  Sex: Male

DRUGS (5)
  1. VINCRISTINA TEVA ITALIA - TEVA ITALIA S.R.L. [Suspect]
     Active Substance: VINCRISTINE SULFATE
     Indication: MEDULLOBLASTOMA
     Dosage: 0.9 MG CYCLICAL
     Route: 041
     Dates: start: 20151210, end: 20151212
  2. LANSOPRAZOLE. [Concomitant]
     Active Substance: LANSOPRAZOLE
     Indication: PRODUCT USED FOR UNKNOWN INDICATION
  3. BACTRIM - ROCHE S.P.A [Concomitant]
  4. ACICLOVIR [Concomitant]
     Active Substance: ACYCLOVIR
     Indication: PRODUCT USED FOR UNKNOWN INDICATION
  5. MUPHORAN - 208 MG [Suspect]
     Active Substance: FOTEMUSTINE
     Indication: MEDULLOBLASTOMA
     Dosage: 50 DF CYCLICAL
     Dates: start: 20151210, end: 20151212

REACTIONS (2)
  - Oropharyngeal pain [Recovering/Resolving]
  - Dysphagia [Recovering/Resolving]

NARRATIVE: CASE EVENT DATE: 20151212
